FAERS Safety Report 16108104 (Version 1)
Quarter: 2019Q1

REPORT INFORMATION
  Report Type: Spontaneous
  Country: FR (occurrence: FR)
  Receive Date: 20190322
  Receipt Date: 20190322
  Transmission Date: 20190418
  Serious: Yes (Death)
  Sender: FDA-Public Use
  Company Number: FR-PFIZER INC-2019123753

PATIENT
  Age: 37 Year
  Sex: Female

DRUGS (6)
  1. VENLAFAXINE HCL [Suspect]
     Active Substance: VENLAFAXINE HYDROCHLORIDE
     Dosage: UNK
     Route: 048
  2. TERCIAN [CYAMEMAZINE TARTRATE] [Suspect]
     Active Substance: CYAMEMAZINE
     Dosage: UNK
     Route: 048
  3. ACTISKENAN [Suspect]
     Active Substance: MORPHINE SULFATE
     Dosage: UNK
     Route: 048
  4. CODEINE [Suspect]
     Active Substance: CODEINE
     Indication: DRUG ABUSE
     Dosage: UNK
  5. PROPRANOLOL [Suspect]
     Active Substance: PROPRANOLOL HYDROCHLORIDE
     Dosage: UNK
     Route: 048
  6. SERESTA [Suspect]
     Active Substance: OXAZEPAM
     Dosage: UNK
     Route: 048

REACTIONS (2)
  - Drug abuse [Fatal]
  - Asphyxia [Fatal]
